FAERS Safety Report 5765193-2 (Version None)
Quarter: 2008Q2

REPORT INFORMATION
  Report Type: 
  Country: None (occurrence: None)
  Receive Date: 20080604
  Receipt Date: 20080530
  Transmission Date: 20081010
  Serious: Yes (Other)
  Sender: FDA-Public Use
  Company Number: ADE# 08-080

PATIENT
  Age: 78 Year
  Sex: Female

DRUGS (4)
  1. MIDRIN CAPSULES [Suspect]
     Indication: HYPOTENSION
     Dosage: 5MG PRN ORAL
     Route: 048
  2. PROVIGIL [Concomitant]
  3. NORVASC [Concomitant]
  4. LISINOPRIL [Concomitant]

REACTIONS (1)
  - BLOOD PRESSURE DECREASED [None]
